FAERS Safety Report 4638813-3 (Version None)
Quarter: 2005Q2

REPORT INFORMATION
  Report Type: 
  Country: None (occurrence: None)
  Receive Date: 20050419
  Receipt Date: 20050308
  Transmission Date: 20051028
  Serious: Yes (Other)
  Sender: FDA-Public Use
  Company Number: DE-BRISTOL-MYERS SQUIBB COMPANY-12892287

PATIENT
  Age: 40 Year
  Sex: Female
  Weight: 55 kg

DRUGS (8)
  1. ABILIFY [Suspect]
     Indication: DISSOCIATIVE DISORDER
     Route: 048
  2. ABILIFY [Suspect]
     Indication: POST-TRAUMATIC STRESS DISORDER
     Route: 048
  3. ATOSIL [Suspect]
     Indication: SLEEP DISORDER
     Route: 048
     Dates: start: 20050222
  4. DIAZEPAM [Concomitant]
     Indication: RESTLESSNESS
     Route: 048
     Dates: start: 20050220
  5. MARCUMAR [Concomitant]
     Indication: ENDOCARDITIS
  6. MARCUMAR [Concomitant]
     Indication: ATRIAL FIBRILLATION
  7. CONCOR [Concomitant]
  8. RYTHMOL [Concomitant]

REACTIONS (2)
  - OROPHARYNGEAL SPASM [None]
  - TORTICOLLIS [None]
